FAERS Safety Report 23333056 (Version 1)
Quarter: 2023Q4

REPORT INFORMATION
  Report Type: Spontaneous
  Country: PT (occurrence: PT)
  Receive Date: 20231222
  Receipt Date: 20231222
  Transmission Date: 20240110
  Serious: Yes (Hospitalization, Other)
  Sender: FDA-Public Use
  Company Number: PT-SUN PHARMACEUTICAL INDUSTRIES LTD-2023RR-424872

PATIENT
  Age: 89 Year
  Sex: Female

DRUGS (6)
  1. ERTAPENEM [Suspect]
     Active Substance: ERTAPENEM
     Indication: Cystitis
     Dosage: 1000 MG Q.D
     Route: 040
  2. ERTAPENEM [Suspect]
     Active Substance: ERTAPENEM
     Indication: Cystitis klebsiella
     Dosage: 1000 MILLIGRAM, ONCE A DAY
     Route: 040
  3. AMOXICILLIN\CLAVULANATE POTASSIUM [Concomitant]
     Active Substance: AMOXICILLIN\CLAVULANATE POTASSIUM
     Indication: Product used for unknown indication
     Dosage: 3600 MILLIGRAM, DAILY, 1200 MILLIGRAM, 3 TIMES A DAY
     Route: 065
  4. LISINOPRIL [Concomitant]
     Active Substance: LISINOPRIL
     Indication: Hypertension
     Dosage: 20 MILLIGRAM, DAILY
     Route: 065
  5. AMLODIPINE [Concomitant]
     Active Substance: AMLODIPINE BESYLATE
     Indication: Hypertension
     Dosage: 5 MILLIGRAM, DAILY
     Route: 065
  6. FERRIC CARBOXYMALTOSE [Concomitant]
     Active Substance: FERRIC CARBOXYMALTOSE
     Indication: Anaemia
     Dosage: 750 MILLIGRAM
     Route: 040

REACTIONS (7)
  - Neurotoxicity [Recovered/Resolved]
  - Toxic encephalopathy [Recovered/Resolved]
  - Confusional state [Recovered/Resolved]
  - Lethargy [Recovered/Resolved]
  - Hallucination, visual [Recovered/Resolved]
  - Delirium [Recovered/Resolved]
  - Disturbance in attention [Recovered/Resolved]
